FAERS Safety Report 23960923 (Version 3)
Quarter: 2024Q4

REPORT INFORMATION
  Report Type: Spontaneous
  Country: JP (occurrence: JP)
  Receive Date: 20240611
  Receipt Date: 20241009
  Transmission Date: 20250115
  Serious: Yes (Other)
  Sender: TEVA
  Company Number: JP-TEVA-VS-3198711

PATIENT
  Age: 69 Year
  Sex: Male

DRUGS (5)
  1. PREDNISOLONE [Suspect]
     Active Substance: PREDNISOLONE
     Indication: Blood immunoglobulin G increased
     Dosage: 30MG
     Route: 048
     Dates: start: 20220601
  2. PREDNISOLONE [Suspect]
     Active Substance: PREDNISOLONE
     Indication: Blood immunoglobulin G increased
     Dosage: 5MG
     Route: 048
  3. PREDNISOLONE [Suspect]
     Active Substance: PREDNISOLONE
     Indication: Blood immunoglobulin G increased
     Dosage: 25MG
     Route: 048
  4. PREDNISOLONE [Suspect]
     Active Substance: PREDNISOLONE
     Indication: Blood immunoglobulin G increased
     Dosage: 10MG
     Route: 048
  5. PREDNISOLONE [Suspect]
     Active Substance: PREDNISOLONE
     Indication: Blood immunoglobulin G increased
     Dosage: 20MG
     Route: 048

REACTIONS (9)
  - Retinitis [Not Recovered/Not Resolved]
  - Immunoglobulins increased [Not Recovered/Not Resolved]
  - Skin exfoliation [Not Recovered/Not Resolved]
  - Pruritus [Not Recovered/Not Resolved]
  - Visual acuity reduced [Not Recovered/Not Resolved]
  - Visual impairment [Not Recovered/Not Resolved]
  - Skin burning sensation [Not Recovered/Not Resolved]
  - Uveitis [Unknown]
  - Hyperhidrosis [Unknown]

NARRATIVE: CASE EVENT DATE: 20221201
